FAERS Safety Report 9226645 (Version 1)
Quarter: 2013Q2

REPORT INFORMATION
  Report Type: Spontaneous
  Country: US (occurrence: US)
  Receive Date: 20130412
  Receipt Date: 20130412
  Transmission Date: 20140414
  Serious: Yes (Other)
  Sender: FDA-Public Use
  Company Number: US-PFIZER INC-2013116034

PATIENT
  Sex: Male

DRUGS (2)
  1. ADVIL [Suspect]
     Indication: DISCOMFORT
     Dosage: 2 DF, UNK
  2. ADVIL [Suspect]
     Indication: PAIN

REACTIONS (1)
  - Renal impairment [Unknown]
